FAERS Safety Report 8549614-8 (Version None)
Quarter: 2012Q3

REPORT INFORMATION
  Report Type: 
  Country: None (occurrence: None)
  Receive Date: 20120730
  Receipt Date: 20120726
  Transmission Date: 20120928
  Serious: Yes (Death, Other)
  Sender: FDA-Public Use
  Company Number: AU-ASTRAZENECA-2012SE38979

PATIENT
  Sex: Female

DRUGS (8)
  1. ACETAMINOPHEN W/ CODEINE [Concomitant]
  2. INDERAL [Concomitant]
  3. PERINDOPRIL ERBUMINE [Concomitant]
  4. SEROQUEL XR [Suspect]
     Route: 048
  5. AMITRIPTYLINE HYDROCHLORIDE [Concomitant]
  6. VALIUM [Concomitant]
  7. SEROQUEL XR [Suspect]
     Route: 048
     Dates: start: 20120605
  8. FLUOXETINE HCL [Concomitant]

REACTIONS (2)
  - OVERDOSE [None]
  - DEATH [None]
